FAERS Safety Report 6493512-0 (Version None)
Quarter: 2009Q4

REPORT INFORMATION
  Report Type: 
  Country: None (occurrence: None)
  Receive Date: 20091211
  Receipt Date: 20091211
  Transmission Date: 20100525
  Serious: Yes (Life-Threatening, Hospitalization)
  Sender: FDA-Public Use
  Company Number: None

PATIENT
  Age: 52 Year
  Sex: Male
  Weight: 99.3377 kg

DRUGS (1)
  1. HALFLYTELY [Suspect]
     Dosage: 2 LITER SOLUTION DRINK 8 OZ./10 MIN PO (ONE TIME USE)
     Route: 048
     Dates: start: 20091209, end: 20091209

REACTIONS (6)
  - HYPERSENSITIVITY [None]
  - HYPOAESTHESIA ORAL [None]
  - LOCAL SWELLING [None]
  - LYMPHADENOPATHY [None]
  - SINUS CONGESTION [None]
  - SNEEZING [None]
